FAERS Safety Report 6898655-5 (Version None)
Quarter: 2010Q3

REPORT INFORMATION
  Report Type: 
  Country: None (occurrence: None)
  Receive Date: 20100802
  Receipt Date: 20071117
  Transmission Date: 20110219
  Serious: Yes (Other)
  Sender: FDA-Public Use
  Company Number: US-PFIZER INC-2007038128

PATIENT
  Age: 58 Year
  Sex: Female
  Weight: 108.9 kg

DRUGS (1)
  1. LYRICA [Suspect]
     Indication: NEURALGIA
     Route: 048
     Dates: end: 20070101

REACTIONS (2)
  - ECCHYMOSIS [None]
  - PURPURA [None]
